FAERS Safety Report 8484730-0 (Version None)
Quarter: 2012Q3

REPORT INFORMATION
  Report Type: 
  Country: None (occurrence: None)
  Receive Date: 20120703
  Receipt Date: 20120627
  Transmission Date: 20120928
  Serious: Yes (Other)
  Sender: FDA-Public Use
  Company Number: US-SANOFI-AVENTIS-2011SA031234

PATIENT
  Age: 77 Year
  Sex: Female
  Weight: 111.36 kg

DRUGS (9)
  1. LOPRESSOR [Concomitant]
     Indication: HEART RATE
     Dates: start: 20080101
  2. LASIX [Concomitant]
  3. CEFUROXIME [Suspect]
     Indication: URINARY TRACT INFECTION
     Route: 065
     Dates: start: 20120401
  4. MULTAQ [Suspect]
     Indication: ATRIAL FIBRILLATION
     Route: 048
     Dates: start: 20090119
  5. LOVASTATIN [Concomitant]
  6. CELEBREX [Concomitant]
  7. KLOR-CON [Concomitant]
  8. COUMADIN [Concomitant]
  9. SYNTHROID [Concomitant]

REACTIONS (10)
  - DIARRHOEA [None]
  - HAEMATOCHEZIA [None]
  - MUSCLE SPASMS [None]
  - MEDICATION RESIDUE [None]
  - WRONG DRUG ADMINISTERED [None]
  - URINARY TRACT INFECTION [None]
  - INCORRECT DOSE ADMINISTERED [None]
  - PULMONARY HYPERTENSION [None]
  - UPPER RESPIRATORY TRACT INFECTION [None]
  - ATRIAL FIBRILLATION [None]
